FAERS Safety Report 7292826-4 (Version None)
Quarter: 2011Q1

REPORT INFORMATION
  Report Type: 
  Country: None (occurrence: None)
  Receive Date: 20110203
  Receipt Date: 20110119
  Transmission Date: 20110831
  Serious: Yes (Hospitalization, Other)
  Sender: FDA-Public Use
  Company Number: 025447

PATIENT
  Sex: Female

DRUGS (10)
  1. REBAMIDPIDE [Concomitant]
  2. PREDNISOLONE [Suspect]
     Indication: RHEUMATOID ARTHRITIS
     Dosage: 5 MG ORAL
     Route: 048
     Dates: start: 20041126
  3. AMLODIPINE BESYLATE [Concomitant]
  4. OLMESARTAN MEDOXOMIL [Concomitant]
  5. FERROUS FUMARATE [Concomitant]
  6. CIMZIA [Suspect]
     Indication: RHEUMATOID ARTHRITIS
     Dosage: (100 MG 1X/2 WEEKS, STUDY: CDP870-41, NBR OF DOSES: 3 SUBCUTANEOUS) (200 MG 1X/2 WEEKS, STUDY: CD870
     Route: 058
     Dates: start: 20100708, end: 20110118
  7. LOXOPROFEN SODIUM [Concomitant]
  8. RHEUMATREX [Suspect]
     Indication: RHEUMATOID ARTHRITIS
     Dosage: (8 MG 1X/WEEK ORAL) (8 MG 1X/WEEK ORAL)
     Route: 048
     Dates: start: 20090118, end: 20110109
  9. RHEUMATREX [Suspect]
     Indication: RHEUMATOID ARTHRITIS
     Dosage: (8 MG 1X/WEEK ORAL) (8 MG 1X/WEEK ORAL)
     Route: 048
     Dates: start: 20110116
  10. OMEPRAZOLE [Concomitant]

REACTIONS (3)
  - INFECTION SUSCEPTIBILITY INCREASED [None]
  - IMMUNOSUPPRESSION [None]
  - CELLULITIS [None]
